FAERS Safety Report 13739127 (Version 1)
Quarter: 2017Q3

REPORT INFORMATION
  Report Type: Spontaneous
  Country: US (occurrence: US)
  Receive Date: 20170710
  Receipt Date: 20170710
  Transmission Date: 20171127
  Serious: Yes (Other)
  Sender: FDA-Public Use
  Company Number: US-SAOL THERAPEUTICS-2017SAO00985

PATIENT
  Age: 55 Year
  Sex: Male
  Weight: 49.89 kg

DRUGS (3)
  1. COMPOUNDED BACLOFEN [Suspect]
     Active Substance: BACLOFEN
     Dosage: 549.4 ?G, \DAY
     Route: 037
     Dates: start: 20160929, end: 20170519
  2. COMPOUNDED BACLOFEN [Suspect]
     Active Substance: BACLOFEN
     Dosage: 550.2 ?G, \DAY
     Route: 037
     Dates: start: 20170519
  3. COMPOUNDED BACLOFEN [Suspect]
     Active Substance: BACLOFEN
     Dosage: 550 ?G, \DAY
     Route: 037
     Dates: start: 20170519

REACTIONS (3)
  - Pain [Recovered/Resolved]
  - Device failure [Recovered/Resolved]
  - Muscle spasticity [Recovered/Resolved]

NARRATIVE: CASE EVENT DATE: 20170528
